FAERS Safety Report 19763293 (Version 1)
Quarter: 2021Q3

REPORT INFORMATION
  Report Type: Report from Study
  Country: RU (occurrence: RU)
  Receive Date: 20210830
  Receipt Date: 20210830
  Transmission Date: 20211014
  Serious: Yes (Other)
  Sender: FDA-Public Use
  Company Number: NVSC2021RU193077

PATIENT
  Age: 72 Year
  Sex: Male

DRUGS (1)
  1. UPERIO [Suspect]
     Active Substance: SACUBITRIL\VALSARTAN
     Indication: PRODUCT USED FOR UNKNOWN INDICATION
     Dosage: UNK, 50 MG (25.7MG+24.3MG)
     Route: 065

REACTIONS (4)
  - Blood pressure decreased [Unknown]
  - Dry mouth [Unknown]
  - Pleural effusion [Unknown]
  - Dyspnoea [Unknown]
